FAERS Safety Report 10032133 (Version 2)
Quarter: 2014Q2

REPORT INFORMATION
  Report Type: Spontaneous
  Country: US (occurrence: US)
  Receive Date: 20140324
  Receipt Date: 20140423
  Transmission Date: 20141212
  Serious: Yes (Other)
  Sender: FDA-Public Use
  Company Number: US-ELI_LILLY_AND_COMPANY-US201402007180

PATIENT
  Sex: Female
  Weight: 146.3 kg

DRUGS (4)
  1. INSULIN HUMAN [Suspect]
     Indication: TYPE 2 DIABETES MELLITUS
     Dosage: 250 U, TID
     Route: 058
     Dates: start: 20131104
  2. INSULIN HUMAN [Suspect]
     Dosage: 100 U, EACH EVENING
     Route: 058
     Dates: start: 20131104
  3. INSULIN HUMAN [Suspect]
     Dosage: 275 U, TID
     Route: 058
  4. GLIPIZIDE [Concomitant]
     Dosage: 5 MG, BID

REACTIONS (4)
  - Renal failure chronic [Unknown]
  - Hyperglycaemia [Recovering/Resolving]
  - Dyslipidaemia [Unknown]
  - Partial lipodystrophy [Unknown]
